FAERS Safety Report 7935839-9 (Version None)
Quarter: 2011Q4

REPORT INFORMATION
  Report Type: 
  Country: None (occurrence: None)
  Receive Date: 20111123
  Receipt Date: 20111116
  Transmission Date: 20120403
  Serious: Yes (Hospitalization)
  Sender: FDA-Public Use
  Company Number: US-BAYER-2011-081991

PATIENT
  Age: 77 Year
  Sex: Female
  Weight: 50 kg

DRUGS (13)
  1. FISH OIL [Concomitant]
     Dosage: 1 CAPSULE, QD
     Route: 048
  2. COENZYME Q10 [Concomitant]
     Dosage: 100 MG, QD
     Route: 048
  3. IPRATROPIUM BROMIDE [Concomitant]
     Dosage: AEROSOL 1 BY INHALATION, QD
     Route: 055
  4. FERROUS SULFATE TAB [Concomitant]
     Dosage: 1 TABLET, TID
     Route: 048
  5. LISINOPRIL [Concomitant]
     Dosage: 5 MG, QD
     Route: 048
  6. NEXAVAR [Suspect]
     Indication: HEPATIC NEOPLASM MALIGNANT
     Dosage: 400 MG, BID
     Route: 048
     Dates: start: 20110702
  7. ZANTAC [Concomitant]
     Dosage: 150 MG, (1 IN AM, 2 IN PM)
     Route: 048
  8. ASPIRIN [Concomitant]
     Dosage: 1 TABLET, QD
     Route: 048
  9. CARVEDILOL [Concomitant]
     Dosage: 3.125 MG, BID
     Route: 048
  10. KLOR-CON [Concomitant]
     Dosage: 20 MEQ, WHEN USING FUROSEMIDE
     Route: 048
  11. PLAVIX [Concomitant]
     Dosage: 75 MG, QD
     Route: 048
  12. FUROSEMIDE [Concomitant]
     Indication: FLUID RETENTION
     Dosage: 20 MG, PRN
     Route: 048
  13. MAGNESIUM [Concomitant]
     Dosage: 500 MG, QD
     Route: 048

REACTIONS (9)
  - LARGE INTESTINE PERFORATION [None]
  - DYSPHAGIA [None]
  - RECTAL HAEMORRHAGE [None]
  - ABDOMINAL PAIN [None]
  - MYOCARDIAL INFARCTION [None]
  - CEREBROVASCULAR ACCIDENT [None]
  - RASH GENERALISED [None]
  - MALAISE [None]
  - LARGE INTESTINAL HAEMORRHAGE [None]
